FAERS Safety Report 10192617 (Version 1)
Quarter: 2014Q2

REPORT INFORMATION
  Report Type: Report from Study
  Country: IT (occurrence: IT)
  Receive Date: 20140523
  Receipt Date: 20140523
  Transmission Date: 20141212
  Serious: Yes (Other)
  Sender: FDA-Public Use
  Company Number: IT-BAXTER-2014BAX026765

PATIENT
  Sex: 0

DRUGS (6)
  1. ENDOXAN BAXTER [Suspect]
     Indication: PLASMA CELL MYELOMA
     Dosage: ON DAYS 1, 8, AND 15
     Route: 048
  2. DEXAMETHASONE [Suspect]
     Indication: PLASMA CELL MYELOMA
     Dosage: ON DAYS 1, 8, 15, AND 22
     Route: 048
  3. CARFILZOMIB [Suspect]
     Indication: PLASMA CELL MYELOMA
     Dosage: ON DAYS 1, 2 OF CYCLE 1
     Route: 042
  4. CARFILZOMIB [Suspect]
     Indication: CHEMOTHERAPY
     Dosage: ON DAYS 8, 9, 15, 16 OF CYCLE 1
     Route: 042
  5. CARFILZOMIB [Suspect]
     Dosage: ON DAYS 1, 2, 8, 9, 15 AND 16 OF CYCLES 2-9 FOR 9 CYCLES
     Route: 042
  6. CARFILZOMIB [Suspect]
     Dosage: ON DAYS 1, 2, 15 AND 16 UNTIL PROGRESSION OR INTOLERANCE
     Route: 042

REACTIONS (1)
  - Unevaluable event [Unknown]
